FAERS Safety Report 8797740 (Version 2)
Quarter: 2013Q1

REPORT INFORMATION
  Report Type: Spontaneous
  Country: US (occurrence: US)
  Receive Date: 20120920
  Receipt Date: 20130120
  Transmission Date: 20140127
  Serious: No
  Sender: FDA-Public Use
  Company Number: US-009507513-1209USA006920

PATIENT
  Sex: Female
  Weight: 83.9 kg

DRUGS (2)
  1. IMPLANON [Suspect]
     Indication: CONTRACEPTION
     Dosage: 1 ROD EVERY 3 YEARS
     Route: 059
     Dates: start: 20120130
  2. ESTRIOL [Concomitant]
     Dosage: UNK

REACTIONS (6)
  - Blood oestrogen decreased [Unknown]
  - Blood iron decreased [Unknown]
  - Blood pressure increased [Unknown]
  - Headache [Unknown]
  - Migraine [Unknown]
  - Metrorrhagia [Unknown]
